FAERS Safety Report 7451134-9 (Version None)
Quarter: 2011Q2

REPORT INFORMATION
  Report Type: 
  Country: None (occurrence: None)
  Receive Date: 20110502
  Receipt Date: 20110419
  Transmission Date: 20111010
  Serious: Yes (Other)
  Sender: FDA-Public Use
  Company Number: PHHY2011FR34186

PATIENT
  Age: 50 Year
  Sex: Male

DRUGS (2)
  1. RASILEZ [Suspect]
     Dosage: 150 MG, UNK
  2. RASILEZ [Suspect]
     Dosage: 300 MG, UNK

REACTIONS (3)
  - RENAL FAILURE [None]
  - CARDIAC FAILURE [None]
  - DYSPNOEA [None]
